FAERS Safety Report 10183712 (Version 1)
Quarter: 2014Q2

REPORT INFORMATION
  Report Type: Spontaneous
  Country: US (occurrence: US)
  Receive Date: 20140520
  Receipt Date: 20140520
  Transmission Date: 20141212
  Serious: No
  Sender: FDA-Public Use
  Company Number: US-ENDO PHARMACEUTICALS INC.-GILD20130009

PATIENT
  Age: 53 Year
  Sex: Female

DRUGS (1)
  1. GILDESS FE [Suspect]
     Indication: PRODUCT USED FOR UNKNOWN INDICATION
     Dosage: 1/20
     Route: 048
     Dates: start: 20130612, end: 201306

REACTIONS (1)
  - Metrorrhagia [Unknown]
